FAERS Safety Report 5793655-0 (Version None)
Quarter: 2008Q2

REPORT INFORMATION
  Report Type: 
  Country: None (occurrence: None)
  Receive Date: 20080627
  Receipt Date: 20080620
  Transmission Date: 20081010
  Serious: Yes (Other)
  Sender: FDA-Public Use
  Company Number: SK-ASTRAZENECA-2008SE03168

PATIENT
  Age: 5428 Day
  Sex: Female
  Weight: 65 kg

DRUGS (2)
  1. SYMBICORT [Suspect]
     Indication: ASTHMA
     Dosage: 160/4.5 MICROGRAM ONE INHALATION BID
     Route: 055
     Dates: start: 20080612, end: 20080613
  2. RIBOMUNYL [Concomitant]
     Indication: IMMUNODEFICIENCY
     Dosage: FOUR DAYS PER MONTH
     Route: 048
     Dates: start: 20080601

REACTIONS (1)
  - DERMATITIS ALLERGIC [None]
